FAERS Safety Report 6683917-7 (Version None)
Quarter: 2010Q2

REPORT INFORMATION
  Report Type: 
  Country: None (occurrence: None)
  Receive Date: 20100416
  Receipt Date: 20100406
  Transmission Date: 20101027
  Serious: Yes (Other)
  Sender: FDA-Public Use
  Company Number: US-PFIZER INC-2010043593

PATIENT
  Sex: Male
  Weight: 102 kg

DRUGS (4)
  1. LIPITOR [Suspect]
     Indication: BLOOD CHOLESTEROL INCREASED
     Dosage: 10 MG, 1X/DAY
     Route: 048
  2. ACTOS [Concomitant]
     Indication: DIABETES MELLITUS
     Dosage: 30 MG, 1X/DAY
     Route: 048
  3. METFORMIN [Concomitant]
     Indication: DIABETES MELLITUS
     Dosage: 500 MG, 2X/DAY
     Route: 048
  4. GLIPIZIDE [Concomitant]
     Indication: DIABETES MELLITUS
     Dosage: 10MG IN THE MORNING AND 5MG AT NIGHT, 2X/DAY
     Route: 048

REACTIONS (2)
  - DECREASED ACTIVITY [None]
  - GAIT DISTURBANCE [None]
